FAERS Safety Report 4917213-2 (Version None)
Quarter: 2006Q1

REPORT INFORMATION
  Report Type: 
  Country: None (occurrence: None)
  Receive Date: 20060221
  Receipt Date: 20060208
  Transmission Date: 20060701
  Serious: Yes (Hospitalization)
  Sender: FDA-Public Use
  Company Number: FR-BRISTOL-MYERS SQUIBB COMPANY-13275417

PATIENT
  Age: 77 Year
  Sex: Female

DRUGS (4)
  1. APROVEL TABS 150 MG [Suspect]
     Indication: HYPERTENSION
     Route: 048
     Dates: start: 20050821
  2. ATARAX [Suspect]
     Dates: start: 20050821
  3. INIPOMP [Suspect]
  4. LIPANTHYL [Suspect]
     Indication: RENAL GLYCOSURIA
     Dates: end: 20051207

REACTIONS (1)
  - RHABDOMYOLYSIS [None]
